FAERS Safety Report 17725471 (Version 3)
Quarter: 2020Q3

REPORT INFORMATION
  Report Type: Report from Study
  Country: DE (occurrence: DE)
  Receive Date: 20200429
  Receipt Date: 20200701
  Transmission Date: 20201102
  Serious: Yes (Death, Disabling, Congenital Anomaly)
  Sender: FDA-Public Use
  Company Number: DE-ROCHE-2580708

PATIENT

DRUGS (2)
  1. GLATIRAMER ACETATE. [Suspect]
     Active Substance: GLATIRAMER ACETATE
     Indication: PRODUCT USED FOR UNKNOWN INDICATION
     Route: 065
  2. OCRELIZUMAB. [Suspect]
     Active Substance: OCRELIZUMAB
     Indication: MULTIPLE SCLEROSIS
     Route: 065

REACTIONS (2)
  - Foetal exposure during pregnancy [Unknown]
  - Encephalocele [Fatal]

NARRATIVE: CASE EVENT DATE: 20200402
